FAERS Safety Report 5822072-X (Version None)
Quarter: 2008Q3

REPORT INFORMATION
  Report Type: 
  Country: None (occurrence: None)
  Receive Date: 20080725
  Receipt Date: 20080715
  Transmission Date: 20090109
  Serious: Yes (Other)
  Sender: FDA-Public Use
  Company Number: JP-JNJFOC-20061201668

PATIENT
  Sex: Female
  Weight: 57 kg

DRUGS (27)
  1. REMICADE [Suspect]
     Route: 042
  2. REMICADE [Suspect]
     Dosage: FOUR DOSES ON UNSPECIFIED DATES
     Route: 042
  3. REMICADE [Suspect]
     Dosage: FOUR DOSES ON UNSPECIFIED DATES
     Route: 042
  4. REMICADE [Suspect]
     Dosage: FOUR DOSES ON UNSPECIFIED DATES
     Route: 042
  5. REMICADE [Suspect]
     Dosage: FOUR DOSES ON UNSPECIFIED DATES
     Route: 042
  6. REMICADE [Suspect]
     Route: 042
  7. REMICADE [Suspect]
     Route: 042
  8. REMICADE [Suspect]
     Route: 042
  9. REMICADE [Suspect]
     Route: 042
  10. REMICADE [Suspect]
     Route: 042
  11. REMICADE [Suspect]
     Indication: RHEUMATOID ARTHRITIS
     Route: 042
  12. METHOTREXATE SODIUM [Suspect]
     Dosage: 10MG/W
     Route: 048
  13. METHOTREXATE SODIUM [Suspect]
     Route: 048
  14. METHOTREXATE SODIUM [Suspect]
     Dosage: 10MG/W
     Route: 048
  15. METHOTREXATE SODIUM [Suspect]
     Indication: RHEUMATOID ARTHRITIS
     Route: 048
  16. ADRENAL HORMONE PREPARATIONS [Concomitant]
     Indication: RHEUMATOID ARTHRITIS
  17. PREDNISOLONE [Concomitant]
     Route: 048
  18. PREDNISOLONE [Concomitant]
     Route: 048
  19. PREDNISOLONE [Concomitant]
     Route: 048
  20. PREDNISOLONE [Concomitant]
     Indication: RHEUMATOID ARTHRITIS
     Route: 048
  21. AZULFIDINE EN-TABS [Concomitant]
     Route: 048
  22. AZULFIDINE EN-TABS [Concomitant]
     Indication: RHEUMATOID ARTHRITIS
     Route: 048
  23. VOLTAREN [Concomitant]
     Route: 048
  24. VOLTAREN [Concomitant]
     Route: 048
  25. VOLTAREN [Concomitant]
     Indication: RHEUMATOID ARTHRITIS
     Route: 048
  26. LEUCOVORIN CALCIUM [Concomitant]
     Indication: PROPHYLAXIS
     Route: 048
  27. TAKEPRON [Concomitant]
     Indication: PROPHYLAXIS
     Route: 048

REACTIONS (1)
  - HODGKIN'S DISEASE [None]
